FAERS Safety Report 10061442 (Version 2)
Quarter: 2014Q2

REPORT INFORMATION
  Report Type: Report from Study
  Country: CN (occurrence: CN)
  Receive Date: 20140407
  Receipt Date: 20140407
  Transmission Date: 20141212
  Serious: Yes (Other)
  Sender: FDA-Public Use
  Company Number: CN-BAYER-2013-105500

PATIENT
  Age: 3 Day
  Sex: Female
  Weight: 4 kg

DRUGS (2)
  1. QLAIRA [Suspect]
     Dosage: UNK
     Route: 064
     Dates: start: 20121112, end: 20121130
  2. QLAIRA [Suspect]
     Dosage: UNK
     Route: 064
     Dates: start: 20121112, end: 20121130

REACTIONS (4)
  - Teratoma [Recovered/Resolved]
  - Neoplasm [Recovered/Resolved]
  - Abdominal mass [Recovered/Resolved]
  - Exposure during pregnancy [None]
